FAERS Safety Report 6405401-8 (Version None)
Quarter: 2009Q4

REPORT INFORMATION
  Report Type: 
  Country: None (occurrence: None)
  Receive Date: 20091019
  Receipt Date: 20091009
  Transmission Date: 20100525
  Serious: Yes (Other)
  Sender: FDA-Public Use
  Company Number: BR-PFIZER INC-2009229171

PATIENT

DRUGS (1)
  1. DETRUSITOL LA [Suspect]
     Dosage: 4 MG, UNK

REACTIONS (1)
  - BRAIN NEOPLASM MALIGNANT [None]
